FAERS Safety Report 24914532 (Version 2)
Quarter: 2025Q1

REPORT INFORMATION
  Report Type: Spontaneous
  Country: JP (occurrence: JP)
  Receive Date: 20250203
  Receipt Date: 20250210
  Transmission Date: 20250409
  Serious: No
  Sender: AMGEN
  Company Number: JP-AMGEN-JPNSP2025018088

PATIENT
  Age: 9 Year
  Sex: Female

DRUGS (3)
  1. BLINATUMOMAB [Suspect]
     Active Substance: BLINATUMOMAB
     Indication: B precursor type acute leukaemia
     Route: 065
  2. FLUDARABINE [Concomitant]
     Active Substance: FLUDARABINE PHOSPHATE
  3. CYCLOPHOSPHAMIDE [Concomitant]
     Active Substance: CYCLOPHOSPHAMIDE

REACTIONS (2)
  - Post-depletion B-cell recovery [Unknown]
  - White blood cell count decreased [Unknown]
